FAERS Safety Report 9546905 (Version 1)
Quarter: 2013Q2

REPORT INFORMATION
  Report Type: Spontaneous
  Country: US (occurrence: None)
  Receive Date: 20130524
  Receipt Date: 20130524
  Transmission Date: 20140414
  Serious: No
  Sender: FDA-Public Use
  Company Number: PHEH2012US024530

PATIENT
  Sex: Female

DRUGS (1)
  1. GILENYA (FINGOLIMOD) CAPSULE, 0.5MG [Suspect]
     Indication: MULTIPLE SCLEROSIS
     Route: 048
     Dates: start: 201108

REACTIONS (5)
  - Hearing impaired [None]
  - Visual acuity reduced [None]
  - Blood glucose increased [None]
  - Alanine aminotransferase increased [None]
  - Aspartate aminotransferase increased [None]
